FAERS Safety Report 19240005 (Version 3)
Quarter: 2021Q3

REPORT INFORMATION
  Report Type: Report from Study
  Country: US (occurrence: US)
  Receive Date: 20210510
  Receipt Date: 20210816
  Transmission Date: 20211014
  Serious: Yes (Hospitalization, Other)
  Sender: FDA-Public Use
  Company Number: US-OTSUKA-2021_004038

PATIENT
  Sex: Male
  Weight: 91.61 kg

DRUGS (3)
  1. CEDAZURIDINE AND DECITABINE [Suspect]
     Active Substance: CEDAZURIDINE\DECITABINE
     Dosage: 1 DF (35 MG DECITABINE AND 100 MG CEDAZURIDINE) QD 1?3 DAYS
     Route: 048
  2. CEDAZURIDINE AND DECITABINE [Suspect]
     Active Substance: CEDAZURIDINE\DECITABINE
     Dosage: (35 MG DECITABINE AND 100 MG CEDAZURIDINE) QD 1?5 DAYS (CYCLE 1)
     Route: 065
  3. CEDAZURIDINE AND DECITABINE [Suspect]
     Active Substance: CEDAZURIDINE\DECITABINE
     Indication: MYELODYSPLASTIC SYNDROME
     Dosage: (35 MG DECITABINE AND 100 MG CEDAZURIDINE) QD 1?5 DAYS (CYCLE 4)
     Route: 048
     Dates: start: 20201103

REACTIONS (5)
  - Aspiration pleural cavity [Unknown]
  - Product use issue [Unknown]
  - Diarrhoea [Unknown]
  - Carotid artery occlusion [Unknown]
  - Lung disorder [Unknown]
